FAERS Safety Report 5427187-6 (Version None)
Quarter: 2007Q3

REPORT INFORMATION
  Report Type: 
  Country: None (occurrence: None)
  Receive Date: 20070828
  Receipt Date: 20070823
  Transmission Date: 20080115
  Serious: Yes (Hospitalization)
  Sender: FDA-Public Use
  Company Number: JP-SP-2007-02876

PATIENT
  Age: 74 Year
  Sex: Male

DRUGS (4)
  1. IMMUCYST [Suspect]
     Indication: BLADDER CANCER
     Route: 043
     Dates: start: 20051019, end: 20051124
  2. AMBROXOL HYDROCHLORIDE [Concomitant]
     Dates: start: 20050117, end: 20051124
  3. THEOPHYLLINE [Concomitant]
     Dates: start: 20050117, end: 20051124
  4. LOSARTAN POTASSIUM [Concomitant]
     Dates: start: 20050117, end: 20051124

REACTIONS (1)
  - ARTHRITIS [None]
